FAERS Safety Report 12695817 (Version 4)
Quarter: 2017Q1

REPORT INFORMATION
  Report Type: Report from Study
  Country: US (occurrence: US)
  Receive Date: 20160829
  Receipt Date: 20170301
  Transmission Date: 20170428
  Serious: Yes (Hospitalization)
  Sender: FDA-Public Use
  Company Number: US-PFIZER INC-2016336237

PATIENT
  Age: 11 Year
  Sex: Male
  Weight: 74.8 kg

DRUGS (15)
  1. CYTARABINE. [Concomitant]
     Active Substance: CYTARABINE
     Dosage: COURSE A, 150 MG/M2, OVER 1-30 MINUTES Q12 HOURS ON DAYS 4 AND 5 (TOTAL 4 DOSES)
     Route: 042
     Dates: start: 20160610
  2. ATIVAN [Concomitant]
     Active Substance: LORAZEPAM
     Dosage: UNK
  3. ZOFRAN [Concomitant]
     Active Substance: ONDANSETRON HYDROCHLORIDE
     Dosage: UNK
  4. CYCLOPHOSPHAMIDE. [Concomitant]
     Active Substance: CYCLOPHOSPHAMIDE
     Indication: ANAPLASTIC LARGE-CELL LYMPHOMA
     Dosage: PROPHASE, 200 MG/M2, OVER 15-30 MINUTES ON DAYS 1 AND 2
     Route: 042
  5. HYDROCORTISONE. [Concomitant]
     Active Substance: HYDROCORTISONE
     Indication: ANAPLASTIC LARGE-CELL LYMPHOMA
     Dosage: PROPHASE, 7.5-12 MG IT ON DAY 1 (AGE BASED DOSING)
     Route: 037
  6. CYTARABINE. [Concomitant]
     Active Substance: CYTARABINE
     Indication: ANAPLASTIC LARGE-CELL LYMPHOMA
     Dosage: PROPHASE, 15-24 MG, ON DAY 1 (AGE BASED DOSING)
     Route: 037
  7. METHOTREXATE SODIUM. [Concomitant]
     Active Substance: METHOTREXATE SODIUM
     Indication: ANAPLASTIC LARGE-CELL LYMPHOMA
     Dosage: PROPHASE, 7.5-12 MG, INTRATHECAL (IT) ON DAY 1 (AGE BASED DOSING)
     Route: 037
  8. VP-16 [Concomitant]
     Active Substance: ETOPOSIDE
     Indication: ANAPLASTIC LARGE-CELL LYMPHOMA
     Dosage: COURSE A, 100 MG/M2, OVER 2 HOURS ON DAYS 4 AND 5
     Route: 042
     Dates: start: 20160610
  9. METHOTREXATE SODIUM. [Concomitant]
     Active Substance: METHOTREXATE SODIUM
     Dosage: COURSE A, 3000 MG/M2, OVER 3 HOURS ON DAY 1
     Route: 042
     Dates: start: 20160607
  10. IFOSFAMIDE. [Concomitant]
     Active Substance: IFOSFAMIDE
     Indication: ANAPLASTIC LARGE-CELL LYMPHOMA
     Dosage: COURSE A, 800 MG/M2, OVER 60 MIN ON DAYS 1-5
     Route: 042
     Dates: start: 20160607
  11. PEPCID [Concomitant]
     Active Substance: FAMOTIDINE
     Dosage: UNK
  12. BACTRIM [Concomitant]
     Active Substance: SULFAMETHOXAZOLE\TRIMETHOPRIM
     Dosage: UNK
  13. CRIZOTINIB [Suspect]
     Active Substance: CRIZOTINIB
     Indication: ANAPLASTIC LARGE-CELL LYMPHOMA
     Dosage: COURSE A, 165 MG/M2, BID ON DAYS 1-21
     Route: 048
     Dates: start: 20160607
  14. DEXAMETHASONE. [Concomitant]
     Active Substance: DEXAMETHASONE
     Indication: ANAPLASTIC LARGE-CELL LYMPHOMA
     Dosage: PROPHASE 5 MG/M2, QD ON DAYS 1-2, AND 5MG/M2 BID ON DAYS 3-5
     Route: 048
  15. DEXAMETHASONE. [Concomitant]
     Active Substance: DEXAMETHASONE
     Dosage: COURSE A, 5 MG/M2, BID ON DAYS 1-5
     Route: 048
     Dates: start: 20160607, end: 20160611

REACTIONS (2)
  - Vascular access complication [Recovering/Resolving]
  - Embolism [Recovering/Resolving]

NARRATIVE: CASE EVENT DATE: 20160615
